FAERS Safety Report 8273348-0 (Version None)
Quarter: 2012Q2

REPORT INFORMATION
  Report Type: 
  Country: None (occurrence: None)
  Receive Date: 20120409
  Receipt Date: 20120409
  Transmission Date: 20120825
  Serious: Yes (Hospitalization)
  Sender: FDA-Public Use
  Company Number: None

PATIENT
  Sex: Female
  Weight: 72.7 kg

DRUGS (2)
  1. ETOPOSIDE [Suspect]
     Dosage: 170 MG
  2. CISPLATIN [Suspect]
     Dosage: 90 MG

REACTIONS (6)
  - WHITE BLOOD CELL COUNT DECREASED [None]
  - OESOPHAGITIS [None]
  - PLATELET COUNT DECREASED [None]
  - NEUTROPHIL COUNT DECREASED [None]
  - VOMITING [None]
  - NAUSEA [None]
